FAERS Safety Report 21827757 (Version 2)
Quarter: 2023Q1

REPORT INFORMATION
  Report Type: Spontaneous
  Country: US (occurrence: US)
  Receive Date: 20230106
  Receipt Date: 20230327
  Transmission Date: 20230417
  Serious: No
  Sender: FDA-Public Use
  Company Number: US-VIIV HEALTHCARE LIMITED-US2023AMR000123

PATIENT
  Age: 52 Year
  Sex: Female

DRUGS (2)
  1. RILPIVIRINE [Suspect]
     Active Substance: RILPIVIRINE
     Indication: HIV infection
     Dosage: UNK UNK, Z: EVERY OTHER MONTH, 600 900 MG
     Route: 065
     Dates: start: 20211123
  2. CABOTEGRAVIR [Suspect]
     Active Substance: CABOTEGRAVIR
     Indication: HIV infection
     Dosage: UNK UNK, Z: EVERY OTHER MONTH, 600 900 MG
     Route: 065
     Dates: start: 20211123

REACTIONS (1)
  - Injection site pruritus [Not Recovered/Not Resolved]
